FAERS Safety Report 11814506 (Version 1)
Quarter: 2015Q4

REPORT INFORMATION
  Report Type: Spontaneous
  Country: US (occurrence: None)
  Receive Date: 20151208
  Receipt Date: 20151208
  Transmission Date: 20160305
  Serious: Yes (Life-Threatening)
  Sender: FDA-Public Use
  Company Number: None

PATIENT
  Age: 53 Year
  Sex: Female
  Weight: 90.72 kg

DRUGS (12)
  1. LISINOPRIL. [Concomitant]
     Active Substance: LISINOPRIL
  2. METFORMIN [Concomitant]
     Active Substance: METFORMIN HYDROCHLORIDE
  3. VITAMINS FOR DIABETICS [Concomitant]
  4. VITAMINS FOR WOMEN OVER 50 [Concomitant]
  5. VITAMIN D [Concomitant]
     Active Substance: CHOLECALCIFEROL
  6. CYMBALTA [Concomitant]
     Active Substance: DULOXETINE HYDROCHLORIDE
  7. CINNAMON. [Concomitant]
     Active Substance: CINNAMON
  8. NUCYNTA [Suspect]
     Active Substance: TAPENTADOL HYDROCHLORIDE
     Route: 048
  9. LIV 52 [Concomitant]
  10. CALCIUM [Concomitant]
     Active Substance: CALCIUM
  11. PROBIOTICS [Concomitant]
     Active Substance: PROBIOTICS NOS
  12. KOREAN GINSENG [Concomitant]

REACTIONS (7)
  - Confusional state [None]
  - Cough [None]
  - Gait disturbance [None]
  - Pulmonary pain [None]
  - Drug interaction [None]
  - Delirium [None]
  - Hyperhidrosis [None]

NARRATIVE: CASE EVENT DATE: 20151118
